FAERS Safety Report 6761859-6 (Version None)
Quarter: 2010Q2

REPORT INFORMATION
  Report Type: 
  Country: None (occurrence: None)
  Receive Date: 20100609
  Receipt Date: 20100528
  Transmission Date: 20101027
  Serious: Yes (Hospitalization, Other)
  Sender: FDA-Public Use
  Company Number: PHHY2010US35278

PATIENT
  Sex: Male
  Weight: 51.26 kg

DRUGS (8)
  1. EXJADE [Suspect]
     Indication: IRON METABOLISM DISORDER
     Dosage: 500 MG, BID
     Route: 048
     Dates: start: 20100407
  2. TIZANIDINE [Concomitant]
  3. CLONAZEPAM [Concomitant]
  4. SIMETHICONE [Concomitant]
  5. SYNTHROID [Concomitant]
  6. REGLAN [Concomitant]
  7. PRILOSEC [Concomitant]
  8. LISINOPRIL [Concomitant]

REACTIONS (2)
  - COMA [None]
  - METABOLIC ACIDOSIS [None]
